FAERS Safety Report 6415731-1 (Version None)
Quarter: 2009Q4

REPORT INFORMATION
  Report Type: 
  Country: None (occurrence: None)
  Receive Date: 20091027
  Receipt Date: 20091014
  Transmission Date: 20100525
  Serious: Yes (Death, Hospitalization)
  Sender: FDA-Public Use
  Company Number: ES-PFIZER INC-2009282935

PATIENT
  Age: 85 Year

DRUGS (12)
  1. NEURONTIN [Suspect]
     Indication: POST HERPETIC NEURALGIA
     Dosage: 300 MG, 3X/DAY
     Route: 048
     Dates: start: 20090410, end: 20090424
  2. NEURONTIN [Suspect]
     Dosage: 300 MG, 1X/DAY
  3. DURAGESIC-100 [Suspect]
     Indication: POST HERPETIC NEURALGIA
     Dosage: 75 UG, UNK
     Route: 062
     Dates: start: 20090410, end: 20090424
  4. DURAGESIC-100 [Suspect]
     Dosage: 25 UNK, UNK
  5. DIGOXIN [Concomitant]
     Indication: CARDIAC FAILURE
  6. DOBUPAL [Concomitant]
     Dosage: 37.5 MG, UNK
  7. DOMPERIDONE [Concomitant]
  8. NULYTELY [Concomitant]
  9. NOLOTIL /SPA/ [Concomitant]
     Indication: OSTEOARTHRITIS
  10. SEGURIL [Concomitant]
     Indication: CARDIAC FAILURE
     Dosage: 40 MG, 2X/DAY
     Route: 048
  11. SEVREDOL [Concomitant]
     Dosage: 10 MG, UNK
  12. SINTROM [Concomitant]
     Indication: ATRIAL FIBRILLATION
     Dosage: UNK; AS NEEDED
     Route: 048

REACTIONS (4)
  - CARDIAC FAILURE CONGESTIVE [None]
  - CONDITION AGGRAVATED [None]
  - DELIRIUM [None]
  - DISORIENTATION [None]
